FAERS Safety Report 19927372 (Version 1)
Quarter: 2021Q4

REPORT INFORMATION
  Report Type: Report from Study
  Country: CA (occurrence: CA)
  Receive Date: 20211007
  Receipt Date: 20211007
  Transmission Date: 20220303
  Serious: Yes (Other)
  Sender: FDA-Public Use
  Company Number: CA-BAYER-2021A219689

PATIENT

DRUGS (1)
  1. EYLEA [Suspect]
     Active Substance: AFLIBERCEPT
     Indication: Retinal vein occlusion
     Dosage: 2 MG, UNK; TOTAL NUMBER OF DOSES UNK; LAST DOSE UNK
     Route: 031
     Dates: start: 20180828

REACTIONS (1)
  - Epilepsy [Not Recovered/Not Resolved]
